FAERS Safety Report 9012564 (Version 1)
Quarter: 2013Q1

REPORT INFORMATION
  Report Type: Spontaneous
  Country: US (occurrence: US)
  Receive Date: 20130114
  Receipt Date: 20130114
  Transmission Date: 20140127
  Serious: Yes (Other)
  Sender: FDA-Public Use
  Company Number: US-PERRIGO-13US000045

PATIENT
  Age: 23 Year
  Sex: Female
  Weight: 61.22 kg

DRUGS (1)
  1. NAPROXEN SODIUM [Suspect]
     Indication: ACCIDENTAL OVERDOSE
     Dosage: 11000 MG, SINGLE
     Route: 048
     Dates: start: 20130103, end: 20130103

REACTIONS (4)
  - Overdose [Unknown]
  - Disorientation [Unknown]
  - Feeling drunk [Unknown]
  - Nausea [Unknown]
